FAERS Safety Report 23228777 (Version 1)
Quarter: 2023Q4

REPORT INFORMATION
  Report Type: Spontaneous
  Country: US (occurrence: None)
  Receive Date: 20231126
  Receipt Date: 20231126
  Transmission Date: 20240110
  Serious: No
  Sender: FDA-Public Use
  Company Number: US-ROCHE-3301166

PATIENT
  Sex: Female
  Weight: 45.4 kg

DRUGS (1)
  1. HERCEPTIN [Suspect]
     Active Substance: TRASTUZUMAB
     Indication: Product used for unknown indication
     Route: 041

REACTIONS (9)
  - Fatigue [Not Recovered/Not Resolved]
  - Headache [Unknown]
  - Brain fog [Unknown]
  - Arthralgia [Unknown]
  - Muscular weakness [Unknown]
  - Gastrointestinal disorder [Unknown]
  - Defaecation disorder [Unknown]
  - Dyspnoea [Unknown]
  - Vision blurred [Unknown]
